FAERS Safety Report 24382762 (Version 1)
Quarter: 2024Q4

REPORT INFORMATION
  Report Type: Spontaneous
  Country: US (occurrence: US)
  Receive Date: 20241001
  Receipt Date: 20241001
  Transmission Date: 20250114
  Serious: Yes (Other)
  Sender: MYLAN
  Company Number: US-MYLANLABS-2024M1086636

PATIENT
  Age: 67 Year
  Sex: Female

DRUGS (6)
  1. TRIAMCINOLONE [Suspect]
     Active Substance: TRIAMCINOLONE
     Indication: Subcorneal pustular dermatosis
     Dosage: UNK
     Route: 026
  2. DAPSONE [Suspect]
     Active Substance: DAPSONE
     Indication: Subcorneal pustular dermatosis
     Dosage: 50 MILLIGRAM, QD, LATER DOSE INCREASED
     Route: 065
  3. DAPSONE [Suspect]
     Active Substance: DAPSONE
     Dosage: 100 MILLIGRAM, QD
     Route: 065
  4. CLOBETASOL [Suspect]
     Active Substance: CLOBETASOL
     Indication: Subcorneal pustular dermatosis
     Dosage: UNK
     Route: 061
  5. BETAMETHASONE DIPROPIONATE [Suspect]
     Active Substance: BETAMETHASONE DIPROPIONATE
     Indication: Subcorneal pustular dermatosis
     Dosage: UNK
     Route: 061
  6. HALOBETASOL [Suspect]
     Active Substance: HALOBETASOL
     Indication: Subcorneal pustular dermatosis
     Dosage: UNK
     Route: 061

REACTIONS (4)
  - Drug ineffective [Unknown]
  - Drug reaction with eosinophilia and systemic symptoms [Recovered/Resolved]
  - Intentional product misuse [Unknown]
  - Off label use [Unknown]
